FAERS Safety Report 13503689 (Version 2)
Quarter: 2017Q2

REPORT INFORMATION
  Report Type: Spontaneous
  Country: US (occurrence: US)
  Receive Date: 20170502
  Receipt Date: 20170517
  Transmission Date: 20170830
  Serious: Yes (Disabling)
  Sender: FDA-Public Use
  Company Number: US-PFIZER INC-2017187934

PATIENT
  Age: 42 Year
  Sex: Female
  Weight: 70 kg

DRUGS (2)
  1. LYRICA [Suspect]
     Active Substance: PREGABALIN
     Dosage: 25 MG ONE TO TWO TIMES DURING THE DAY AND THEN ONE TO TWO AT TIMES AT BED TIME.
  2. LYRICA [Suspect]
     Active Substance: PREGABALIN
     Indication: PAIN IN EXTREMITY
     Dosage: 25 MG, 2X/DAY
     Dates: start: 2008

REACTIONS (6)
  - Intervertebral disc protrusion [Unknown]
  - Intentional product use issue [Unknown]
  - Pain [Unknown]
  - Post laminectomy syndrome [Unknown]
  - Nerve injury [Unknown]
  - Muscle injury [Unknown]
